FAERS Safety Report 6454779-8 (Version None)
Quarter: 2009Q4

REPORT INFORMATION
  Report Type: 
  Country: None (occurrence: None)
  Receive Date: 20091118
  Receipt Date: 20090814
  Transmission Date: 20100525
  Serious: Yes (Hospitalization)
  Sender: FDA-Public Use
  Company Number: 2009SP020214

PATIENT
  Age: 33 Year
  Sex: Female

DRUGS (4)
  1. PUREGON (FOLLITROPIN BETA) [Suspect]
     Indication: OVULATION INDUCTION
     Dosage: 225 IU;QD; IM
     Route: 030
     Dates: start: 20090611, end: 20090616
  2. GONADORELIN              (GONADORELIN) [Suspect]
     Indication: OVULATION INDUCTION
     Dosage: 1 DF; QD; IM; 0.5 DF, QD; IM
     Route: 030
     Dates: start: 20090501, end: 20090611
  3. GONADORELIN              (GONADORELIN) [Suspect]
     Indication: OVULATION INDUCTION
     Dosage: 1 DF; QD; IM; 0.5 DF, QD; IM
     Route: 030
     Dates: start: 20090611, end: 20090616
  4. GONADORELIN              (GONADORELIN) [Suspect]
     Indication: OVULATION INDUCTION
     Dosage: 1 DF; QD; IM; 0.5 DF, QD; IM
     Route: 030
     Dates: start: 20090611, end: 20090616

REACTIONS (4)
  - ASTHENIA [None]
  - NORMOCHROMIC NORMOCYTIC ANAEMIA [None]
  - OESOPHAGITIS [None]
  - TACHYCARDIA [None]
